FAERS Safety Report 6781527-4 (Version None)
Quarter: 2010Q2

REPORT INFORMATION
  Report Type: 
  Country: None (occurrence: None)
  Receive Date: 20100615
  Receipt Date: 20100602
  Transmission Date: 20101027
  Serious: Yes (Other)
  Sender: FDA-Public Use
  Company Number: JHP201000175

PATIENT
  Age: 68 Year
  Sex: Female

DRUGS (4)
  1. DANTRIUM [Suspect]
     Indication: NEUROLEPTIC MALIGNANT SYNDROME
     Dosage: 25MG TID ORAL
     Route: 048
     Dates: start: 20050304
  2. DEPAS [Suspect]
     Indication: DEPRESSION
     Dosage: 0.5 MG, QD, ORAL
     Route: 048
     Dates: start: 20080407, end: 20100419
  3. DEPAS [Suspect]
     Indication: INSOMNIA
     Dosage: 0.5 MG, QD, ORAL
     Route: 048
     Dates: start: 20080407, end: 20100419
  4. ZANTAC (RANITIDINE HYDROCHLORIDE) TABLET [Concomitant]

REACTIONS (8)
  - DELIRIUM [None]
  - DEPRESSION [None]
  - DYSPNOEA [None]
  - EPILEPSY [None]
  - INSOMNIA [None]
  - MUSCULAR WEAKNESS [None]
  - RESPIRATORY DEPRESSION [None]
  - SLEEP TERROR [None]
